FAERS Safety Report 22341016 (Version 1)
Quarter: 2023Q2

REPORT INFORMATION
  Report Type: Spontaneous
  Country: US (occurrence: US)
  Receive Date: 20230518
  Receipt Date: 20230518
  Transmission Date: 20230721
  Serious: Yes (Life-Threatening)
  Sender: FDA-Public Use
  Company Number: US-PFIZER INC-PV202300087719

PATIENT
  Age: 9 Year
  Sex: Male

DRUGS (6)
  1. METHYLPREDNISOLONE ACETATE [Suspect]
     Active Substance: METHYLPREDNISOLONE ACETATE
     Indication: Multisystem inflammatory syndrome in children
     Dosage: UNK
  2. ENOXAPARIN [Suspect]
     Active Substance: ENOXAPARIN
     Indication: Multisystem inflammatory syndrome in children
     Dosage: UNK
  3. ASPIRIN [Suspect]
     Active Substance: ASPIRIN
     Indication: Multisystem inflammatory syndrome in children
     Dosage: UNK
  4. CEFTRIAXONE [Suspect]
     Active Substance: CEFTRIAXONE
     Indication: Multisystem inflammatory syndrome in children
     Dosage: UNK
  5. ANAKINRA [Suspect]
     Active Substance: ANAKINRA
     Indication: Multisystem inflammatory syndrome in children
     Dosage: UNK
  6. HUMAN IMMUNOGLOBULIN G [Suspect]
     Active Substance: HUMAN IMMUNOGLOBULIN G
     Indication: Multisystem inflammatory syndrome in children
     Dosage: UNK
     Route: 042

REACTIONS (1)
  - Drug ineffective [Recovering/Resolving]
